FAERS Safety Report 9068703 (Version 1)
Quarter: 2013Q1

REPORT INFORMATION
  Report Type: Spontaneous
  Country: US (occurrence: None)
  Receive Date: 20130212
  Receipt Date: 20130212
  Transmission Date: 20140127
  Serious: Yes (Hospitalization, Disabling)
  Sender: FDA-Public Use
  Company Number: None

PATIENT
  Age: 39 Year
  Sex: Female
  Weight: 97.52 kg

DRUGS (3)
  1. DARVOCET [Suspect]
     Indication: ACCIDENTAL EXPOSURE TO PRODUCT
     Dates: start: 199606
  2. PROPOXYPHENE [Suspect]
     Indication: PAIN
     Dates: start: 200807
  3. HEART MONITOR [Concomitant]

REACTIONS (18)
  - Coma [None]
  - Incoherent [None]
  - Disturbance in attention [None]
  - Dysstasia [None]
  - Mobility decreased [None]
  - Abdominal pain [None]
  - Muscular weakness [None]
  - Pain in extremity [None]
  - Fall [None]
  - Panic attack [None]
  - Palpitations [None]
  - Dyspnoea [None]
  - Chest pain [None]
  - Facial pain [None]
  - Depression [None]
  - Cerebrovascular accident [None]
  - Asthenia [None]
  - Hypersomnia [None]
